FAERS Safety Report 22690970 (Version 2)
Quarter: 2024Q2

REPORT INFORMATION
  Report Type: Report from Study
  Country: AT (occurrence: AT)
  Receive Date: 20230711
  Receipt Date: 20240613
  Transmission Date: 20240716
  Serious: Yes (Hospitalization)
  Sender: FDA-Public Use
  Company Number: None

PATIENT
  Age: 78 Year
  Sex: Female
  Weight: 58 kg

DRUGS (36)
  1. LETROZOLE [Suspect]
     Active Substance: LETROZOLE
     Indication: Breast cancer metastatic
     Dosage: 2.5 MG, OD - ONCE DAILY
     Dates: start: 20181029
  2. PACLITAXEL [Suspect]
     Active Substance: PACLITAXEL
     Indication: HER2 positive breast cancer
     Dosage: 279.32 MG, EVERY WEEK
     Dates: start: 20180921, end: 20180921
  3. PERTUZUMAB [Suspect]
     Active Substance: PERTUZUMAB
     Indication: HER2 positive breast cancer
     Dosage: 840 MG, EVERY 3 WEEKS (MOST RECENT DOSE PRIOR TO THE EVENT: 21/SEP/2018)
     Dates: start: 20180810, end: 20180810
  4. DENOSUMAB [Suspect]
     Active Substance: DENOSUMAB
     Indication: HER2 positive breast cancer
     Dates: start: 20181012
  5. PACLITAXEL [Suspect]
     Active Substance: PACLITAXEL
     Indication: HER2 positive breast cancer
     Dosage: SOLUTION FOR INJECTION
     Dates: start: 20180928, end: 20181019
  6. TRASTUZUMAB [Suspect]
     Active Substance: TRASTUZUMAB
     Indication: HER2 positive breast cancer
     Dosage: 464 MG, EVERY 3 WEEKS (MOST RECENT DOSE PRIOR TO THE EVENT: 21/SEP/2018)
     Dates: start: 20180810, end: 20180810
  7. RANITIDINE HYDROCHLORIDE [Concomitant]
     Active Substance: RANITIDINE HYDROCHLORIDE
     Dosage: ONGOING - NOT CHECKED
     Dates: start: 20180810, end: 20181019
  8. GLUCOPHAGE [Concomitant]
     Active Substance: METFORMIN HYDROCHLORIDE
     Indication: Diabetes mellitus
  9. DIMETHINDENE MALEATE [Concomitant]
     Active Substance: DIMETHINDENE MALEATE
     Dosage: ONGOING - NOT CHECKED
     Dates: start: 20180810, end: 20181019
  10. KYTRIL [Concomitant]
     Active Substance: GRANISETRON HYDROCHLORIDE
     Dosage: ONGOING -NOT CHECKED
     Dates: start: 20180810, end: 20181019
  11. ASPIRIN [Concomitant]
     Active Substance: ASPIRIN
     Dosage: ONGOING -CHECKED
     Dates: start: 20181012, end: 20181115
  12. CALCIUM CARBONATE\CHOLECALCIFEROL [Concomitant]
     Active Substance: CALCIUM CARBONATE\CHOLECALCIFEROL
     Dates: start: 20191230
  13. KALIORAL [Concomitant]
  14. METOPROLOL [Concomitant]
     Active Substance: METOPROLOL
     Dosage: ONGOING - CHECKED
  15. DEXABENE [Concomitant]
     Dosage: ONGOING - NOT CHECKED
     Dates: start: 20180810, end: 20181019
  16. ACEMIN [Concomitant]
     Dosage: ONGOING - CHECKED
  17. CIPRALEX [Concomitant]
     Active Substance: ESCITALOPRAM OXALATE
     Dates: start: 201901
  18. DEXAGENTA-POS [Concomitant]
  19. PANTOPRAZOLE SODIUM [Concomitant]
     Active Substance: PANTOPRAZOLE SODIUM
  20. LEVOCETIRIZINE DIHYDROCHLORIDE [Concomitant]
     Active Substance: LEVOCETIRIZINE DIHYDROCHLORIDE
     Dates: end: 20221215
  21. RIVASTIGMINE [Concomitant]
     Active Substance: RIVASTIGMINE
  22. VITAMINS WITH MINERALS [Concomitant]
     Active Substance: MINERALS\VITAMINS
     Dosage: ONGOING - CHECKED
     Dates: start: 20181029
  23. AMLODIPINE [Concomitant]
     Active Substance: AMLODIPINE BESYLATE
     Dosage: ONGOING - CHECKED
     Dates: start: 201812
  24. PREGABALIN [Concomitant]
     Active Substance: PREGABALIN
  25. OLEOVIT [Concomitant]
     Dates: start: 20221213
  26. DULCOLAX [Concomitant]
  27. DIPYRONE [Concomitant]
     Active Substance: DIPYRONE
     Indication: Pain
     Dates: start: 20221220
  28. TRASTUZUMAB [Suspect]
     Active Substance: TRASTUZUMAB
     Indication: HER2 positive breast cancer
     Dates: start: 20181130, end: 20190111
  29. TRASTUZUMAB [Suspect]
     Active Substance: TRASTUZUMAB
     Indication: HER2 positive breast cancer
     Dates: start: 20190201, end: 20190315
  30. TRASTUZUMAB [Suspect]
     Active Substance: TRASTUZUMAB
     Indication: HER2 positive breast cancer
     Dates: start: 20190405, end: 20190517
  31. TRASTUZUMAB [Suspect]
     Active Substance: TRASTUZUMAB
     Indication: HER2 positive breast cancer
     Dates: start: 20190607, end: 20200221
  32. TRASTUZUMAB [Suspect]
     Active Substance: TRASTUZUMAB
     Indication: HER2 positive breast cancer
     Dates: start: 20200424, end: 20220928
  33. PACLITAXEL [Suspect]
     Active Substance: PACLITAXEL
     Indication: HER2 positive breast cancer
     Dosage: 129.61 MG, EVERY WEEK
     Dates: start: 20180810, end: 20180824
  34. PACLITAXEL [Suspect]
     Active Substance: PACLITAXEL
     Indication: HER2 positive breast cancer
  35. PERTUZUMAB [Suspect]
     Active Substance: PERTUZUMAB
     Indication: HER2 positive breast cancer
     Dosage: SOLUTION FOR INFUSION
     Dates: start: 20180921, end: 20190201
  36. TRASTUZUMAB [Suspect]
     Active Substance: TRASTUZUMAB
     Indication: HER2 positive breast cancer
     Dates: start: 20180921, end: 20181106

REACTIONS (7)
  - Nausea [Recovered/Resolved]
  - Oedema peripheral [Recovered/Resolved]
  - Lymphoedema [Recovered/Resolved]
  - Fatigue [Recovered/Resolved]
  - Anaemia [Recovered/Resolved]
  - Epistaxis [Recovered/Resolved]
  - Abdominal pain [Recovered/Resolved]

NARRATIVE: CASE EVENT DATE: 20180928
